FAERS Safety Report 5412720-0 (Version None)
Quarter: 2007Q3

REPORT INFORMATION
  Report Type: 
  Country: None (occurrence: None)
  Receive Date: 20070809
  Receipt Date: 20070731
  Transmission Date: 20080115
  Serious: No
  Sender: FDA-Public Use
  Company Number: 2007-162142-NL

PATIENT
  Age: 39 Year
  Sex: Female

DRUGS (4)
  1. ETONOGESTREL [Suspect]
     Indication: CONTRACEPTION
     Dosage: DF SUBCUTANEOUS
     Route: 058
  2. INSULIN HUMAN ZINC SUSPENSION [Concomitant]
  3. INSULIN LISPRO [Concomitant]
  4. COVERSYL PLUS [Concomitant]

REACTIONS (3)
  - HYPOGLYCAEMIA [None]
  - INSULIN RESISTANCE [None]
  - LOSS OF CONSCIOUSNESS [None]
